FAERS Safety Report 9423836 (Version 1)
Quarter: 2013Q3

REPORT INFORMATION
  Report Type: Spontaneous
  Country: AU (occurrence: US)
  Receive Date: 20130729
  Receipt Date: 20130729
  Transmission Date: 20140515
  Serious: Yes (Other)
  Sender: FDA-Public Use
  Company Number: US-PFIZER INC-2013215568

PATIENT
  Age: 11 Year
  Sex: Male
  Weight: 29.3 kg

DRUGS (1)
  1. HYDROCORTISONE SODIUM SUCCINATE [Suspect]
     Indication: ADRENAL INSUFFICIENCY
     Dosage: 60 MG/M 2
     Route: 042

REACTIONS (1)
  - Cardiomyopathy [Recovered/Resolved]
